FAERS Safety Report 16214666 (Version 2)
Quarter: 2020Q2

REPORT INFORMATION
  Report Type: Spontaneous
  Country: US (occurrence: US)
  Receive Date: 20190418
  Receipt Date: 20200415
  Transmission Date: 20200713
  Serious: Yes (Other)
  Sender: FDA-Public Use
  Company Number: US-GILEAD-2019-0402840

PATIENT
  Age: 43 Year
  Sex: Male

DRUGS (66)
  1. SYMTUZA [Concomitant]
     Active Substance: COBICISTAT\DARUNAVIR\EMTRICITABINE\TENOFOVIR ALAFENAMIDE
  2. EPOGEN [Concomitant]
     Active Substance: ERYTHROPOIETIN
  3. REYATAZ [Concomitant]
     Active Substance: ATAZANAVIR SULFATE
  4. ZYRTEC [Concomitant]
     Active Substance: CETIRIZINE HYDROCHLORIDE
  5. VITAMIN B6 [Concomitant]
     Active Substance: PYRIDOXINE HYDROCHLORIDE
  6. FOSRENOL [Concomitant]
     Active Substance: LANTHANUM CARBONATE
  7. ARANESP [Concomitant]
     Active Substance: DARBEPOETIN ALFA
  8. VITAPLEX MINERAL [Concomitant]
  9. ISENTRESS [Concomitant]
     Active Substance: RALTEGRAVIR POTASSIUM
  10. PREZISTA [Concomitant]
     Active Substance: DARUNAVIR ETHANOLATE
  11. INTELENCE [Concomitant]
     Active Substance: ETRAVIRINE
  12. FUROSEMIDE. [Concomitant]
     Active Substance: FUROSEMIDE
  13. NASONEX [Concomitant]
     Active Substance: MOMETASONE FUROATE
  14. FLUTICASONE. [Concomitant]
     Active Substance: FLUTICASONE
  15. VIREAD [Suspect]
     Active Substance: TENOFOVIR DISOPROXIL FUMARATE
     Dosage: 300 MG, Q1WK
     Route: 048
     Dates: start: 200305, end: 201608
  16. PREVACID [Concomitant]
     Active Substance: LANSOPRAZOLE
  17. ZOLPIDEM TARTRATE. [Concomitant]
     Active Substance: ZOLPIDEM TARTRATE
  18. VITAMIN D2 [Concomitant]
     Active Substance: ERGOCALCIFEROL
  19. GABAPENTIN. [Concomitant]
     Active Substance: GABAPENTIN
  20. BACTRIM DS [Concomitant]
     Active Substance: SULFAMETHOXAZOLE\TRIMETHOPRIM
  21. TENOFOVIR [Concomitant]
     Active Substance: TENOFOVIR
  22. ZERIT [Concomitant]
     Active Substance: STAVUDINE
  23. 3TC [Concomitant]
     Active Substance: LAMIVUDINE
  24. LISINOPRIL. [Concomitant]
     Active Substance: LISINOPRIL
  25. MEGACE [Concomitant]
     Active Substance: MEGESTROL ACETATE
  26. CYANOCOBALAMIN. [Concomitant]
     Active Substance: CYANOCOBALAMIN
  27. FENTANYL. [Concomitant]
     Active Substance: FENTANYL
  28. CYCLOBENZAPRINE. [Concomitant]
     Active Substance: CYCLOBENZAPRINE
  29. AMOXI CLAV [Concomitant]
     Active Substance: AMOXICILLIN\CLAVULANATE POTASSIUM
  30. BIKTARVY [Concomitant]
     Active Substance: BICTEGRAVIR SODIUM\EMTRICITABINE\TENOFOVIR ALAFENAMIDE FUMARATE
  31. DIDANOSINE. [Concomitant]
     Active Substance: DIDANOSINE
  32. NORVIR [Concomitant]
     Active Substance: RITONAVIR
  33. TRIMETHOPRIM SULFA [Concomitant]
     Active Substance: TRIMETHOPRIM SULFATE
  34. AMBIEN [Concomitant]
     Active Substance: ZOLPIDEM TARTRATE
  35. DIFLUCAN [Concomitant]
     Active Substance: FLUCONAZOLE
  36. FERROUS SULFATE. [Concomitant]
     Active Substance: FERROUS SULFATE
  37. ZIAGEN [Concomitant]
     Active Substance: ABACAVIR SULFATE
  38. OXYCONTIN [Concomitant]
     Active Substance: OXYCODONE HYDROCHLORIDE
  39. VIREAD [Suspect]
     Active Substance: TENOFOVIR DISOPROXIL FUMARATE
     Dosage: 300 MG, QOD
     Route: 048
  40. ITRACONAZOLE. [Concomitant]
     Active Substance: ITRACONAZOLE
  41. TRAZODONE [Concomitant]
     Active Substance: TRAZODONE HYDROCHLORIDE
  42. VITAMIN D NOS [Concomitant]
     Active Substance: VITAMIN D NOS
  43. COLCRYS [Concomitant]
     Active Substance: COLCHICINE
  44. VIREAD [Suspect]
     Active Substance: TENOFOVIR DISOPROXIL FUMARATE
     Dosage: 300 MG, QD
     Route: 048
  45. AZITHROMYCIN ANHYDROUS. [Concomitant]
     Active Substance: AZITHROMYCIN ANHYDROUS
  46. VALTREX [Concomitant]
     Active Substance: VALACYCLOVIR HYDROCHLORIDE
  47. PERCOCET [Concomitant]
     Active Substance: ACETAMINOPHEN\OXYCODONE HYDROCHLORIDE
  48. ZITHROMAX [Concomitant]
     Active Substance: AZITHROMYCIN DIHYDRATE
  49. TOPROL XL [Concomitant]
     Active Substance: METOPROLOL SUCCINATE
  50. BACTROBAN [Concomitant]
     Active Substance: MUPIROCIN\MUPIROCIN CALCIUM
  51. VIRACEPT [Concomitant]
     Active Substance: NELFINAVIR MESYLATE
  52. PRAVASTATIN. [Concomitant]
     Active Substance: PRAVASTATIN
  53. VIREAD [Suspect]
     Active Substance: TENOFOVIR DISOPROXIL FUMARATE
     Dosage: 300 MG, Q3DAYS
     Route: 048
  54. AMPHOJEL 65 [Concomitant]
  55. IBUPROFEN. [Concomitant]
     Active Substance: IBUPROFEN
  56. VIREAD [Suspect]
     Active Substance: TENOFOVIR DISOPROXIL FUMARATE
     Indication: HIV INFECTION
     Dosage: 300 MG, Q1WK
     Route: 048
     Dates: start: 200305, end: 200606
  57. GENVOYA [Concomitant]
     Active Substance: COBICISTAT\ELVITEGRAVIR\EMTRICITABINE\TENOFOVIR ALAFENAMIDE FUMARATE
  58. LORTAB [Concomitant]
     Active Substance: ACETAMINOPHEN\HYDROCODONE BITARTRATE
  59. PHENERGAN [Concomitant]
     Active Substance: PROMETHAZINE HYDROCHLORIDE
  60. MEPRON [Concomitant]
     Active Substance: ATOVAQUONE
  61. BIDEX DM [Concomitant]
  62. NEXIUM [Concomitant]
     Active Substance: ESOMEPRAZOLE MAGNESIUM
  63. RENAGEL [SEVELAMER CARBONATE] [Concomitant]
  64. PREZCOBIX [Concomitant]
     Active Substance: COBICISTAT\DARUNAVIR ETHANOLATE
  65. ALLOPURINOL. [Concomitant]
     Active Substance: ALLOPURINOL
  66. PREGABALIN. [Concomitant]
     Active Substance: PREGABALIN

REACTIONS (9)
  - Tooth loss [Not Recovered/Not Resolved]
  - Bone density decreased [Not Recovered/Not Resolved]
  - Anhedonia [Unknown]
  - End stage renal disease [Not Recovered/Not Resolved]
  - Economic problem [Unknown]
  - Emotional distress [Unknown]
  - Pain [Unknown]
  - Chronic kidney disease [Unknown]
  - Anxiety [Unknown]

NARRATIVE: CASE EVENT DATE: 200610
